FAERS Safety Report 17225676 (Version 2)
Quarter: 2023Q1

REPORT INFORMATION
  Report Type: Spontaneous
  Country: JP (occurrence: JP)
  Receive Date: 20200102
  Receipt Date: 20230303
  Transmission Date: 20230418
  Serious: Yes (Death, Other)
  Sender: FDA-Public Use
  Company Number: JP-SHIRE-JP201907673

PATIENT
  Age: 15 Year
  Sex: Male
  Weight: 20 kg

DRUGS (1)
  1. ELAPRASE [Suspect]
     Active Substance: IDURSULFASE
     Indication: Mucopolysaccharidosis II
     Dosage: 1.5 MILLILITER
     Route: 041
     Dates: start: 20101227, end: 20191128

REACTIONS (6)
  - Therapeutic product effect incomplete [Fatal]
  - Respiratory failure [Fatal]
  - Nervous system disorder [Unknown]
  - Condition aggravated [Unknown]
  - Obstructive airways disorder [Unknown]
  - Musculoskeletal stiffness [Unknown]

NARRATIVE: CASE EVENT DATE: 20191204
